FAERS Safety Report 9790884 (Version 2)
Quarter: 2013Q4

REPORT INFORMATION
  Report Type: Spontaneous
  Country: US (occurrence: US)
  Receive Date: 20131231
  Receipt Date: 20131231
  Transmission Date: 20140711
  Serious: Yes (Hospitalization, Disabling, Other)
  Sender: FDA-Public Use
  Company Number: US-009507513-0712USA02113

PATIENT
  Sex: Female

DRUGS (2)
  1. FOSAMAX [Suspect]
     Indication: OSTEOPOROSIS
     Route: 048
     Dates: start: 1996, end: 19970508
  2. PREMARIN [Concomitant]
     Indication: OSTEOPOROSIS
     Dates: start: 1984

REACTIONS (49)
  - Intervertebral disc degeneration [Not Recovered/Not Resolved]
  - Hepatitis C [Unknown]
  - Jaw fracture [Unknown]
  - Depression [Unknown]
  - Rectocele [Unknown]
  - Stress urinary incontinence [Unknown]
  - Osteonecrosis of jaw [Not Recovered/Not Resolved]
  - Osteonecrosis of jaw [Unknown]
  - Gastrooesophageal reflux disease [Unknown]
  - Malaise [Unknown]
  - Arthropathy [Unknown]
  - Tooth disorder [Unknown]
  - Bruxism [Unknown]
  - Stomatitis [Unknown]
  - Tooth disorder [Unknown]
  - Sciatica [Unknown]
  - Joint effusion [Unknown]
  - Bruxism [Not Recovered/Not Resolved]
  - Osteochondrosis [Unknown]
  - Pain [Unknown]
  - Ear pain [Unknown]
  - Muscular weakness [Unknown]
  - Temporomandibular joint syndrome [Not Recovered/Not Resolved]
  - Facial pain [Unknown]
  - Tooth disorder [Unknown]
  - Activities of daily living impaired [Not Recovered/Not Resolved]
  - Microgenia [Unknown]
  - Dysplasia [Unknown]
  - Hyperhidrosis [Unknown]
  - Memory impairment [Unknown]
  - Obsessive-compulsive disorder [Unknown]
  - Toothache [Unknown]
  - Sinusitis [Unknown]
  - Osteoarthritis [Unknown]
  - Fistula [Unknown]
  - Anxiety [Unknown]
  - Road traffic accident [Unknown]
  - Haemorrhagic anaemia [Unknown]
  - Hypertension [Unknown]
  - Urinary tract infection [Unknown]
  - Liver disorder [Unknown]
  - Scarlet fever [Unknown]
  - Herpes zoster [Unknown]
  - Sinus disorder [Unknown]
  - Constipation [Unknown]
  - Arthralgia [Not Recovered/Not Resolved]
  - Neck pain [Not Recovered/Not Resolved]
  - Back pain [Not Recovered/Not Resolved]
  - Headache [Not Recovered/Not Resolved]
